FAERS Safety Report 10968109 (Version 1)
Quarter: 2015Q1

REPORT INFORMATION
  Report Type: Spontaneous
  Country: US (occurrence: US)
  Receive Date: 20150330
  Receipt Date: 20150330
  Transmission Date: 20150721
  Serious: No
  Sender: FDA-Public Use
  Company Number: US-GLAXOSMITHKLINE-US2015GSK041823

PATIENT
  Sex: Female

DRUGS (1)
  1. BENZOYL PEROXIDE + CLINDAMYCIN PHOSPHATE [Suspect]
     Active Substance: BENZOYL PEROXIDE\CLINDAMYCIN PHOSPHATE
     Indication: PRODUCT USED FOR UNKNOWN INDICATION
     Dosage: UNK, U
     Route: 065

REACTIONS (3)
  - Sinusitis [Unknown]
  - Cough [Unknown]
  - Malaise [Unknown]

NARRATIVE: CASE EVENT DATE: 20150325
